FAERS Safety Report 8197054-6 (Version None)
Quarter: 2012Q1

REPORT INFORMATION
  Report Type: 
  Country: None (occurrence: None)
  Receive Date: 20120227
  Receipt Date: 20111110
  Transmission Date: 20120608
  Serious: Yes (Other)
  Sender: FDA-Public Use
  Company Number: 339184

PATIENT
  Sex: Female

DRUGS (1)
  1. VICTOZA [Suspect]
     Indication: WEIGHT CONTROL
     Dosage: 1.8 MG, QD, SUBCUTANEOUS
     Route: 058

REACTIONS (1)
  - PANCREATITIS [None]
